FAERS Safety Report 9413776 (Version 1)
Quarter: 2013Q3

REPORT INFORMATION
  Report Type: Spontaneous
  Country: None (occurrence: None)
  Receive Date: 20130708
  Receipt Date: 20130708
  Transmission Date: 20140515
  Serious: Yes (Other)
  Sender: FDA-Public Use
  Company Number: AUR-APL-2009-01650

PATIENT
  Age: 61 Year
  Sex: Female

DRUGS (3)
  1. SIMVASTATIN [Suspect]
     Indication: DYSLIPIDAEMIA
  2. LIPITOR [Suspect]
     Indication: DYSLIPIDAEMIA
  3. PRAVASTATIN [Suspect]
     Indication: DYSLIPIDAEMIA

REACTIONS (7)
  - Pain in extremity [None]
  - Alopecia [None]
  - Sleep disorder [None]
  - Muscle contractions involuntary [None]
  - Gamma-glutamyltransferase increased [None]
  - Alanine aminotransferase increased [None]
  - Speech disorder [None]
